FAERS Safety Report 13933087 (Version 1)
Quarter: 2017Q3

REPORT INFORMATION
  Report Type: Spontaneous
  Country: FR (occurrence: FR)
  Receive Date: 20170904
  Receipt Date: 20170904
  Transmission Date: 20171127
  Serious: Yes (Hospitalization)
  Sender: FDA-Public Use
  Company Number: FR-BAXTER-2017BAX031105

PATIENT
  Age: 34 Year
  Sex: Male

DRUGS (12)
  1. SOLUPRED [Concomitant]
     Active Substance: PREDNISOLONE
     Indication: PRODUCT USED FOR UNKNOWN INDICATION
     Route: 048
     Dates: start: 20170724
  2. DOXORUBICINE TEVA [Suspect]
     Active Substance: DOXORUBICIN
     Indication: EWING^S SARCOMA
     Dosage: FORM STRENGTH: 50MG/25ML, FIRST CYCLE
     Route: 042
     Dates: start: 20170721, end: 20170723
  3. HOLOXAN 2000 MG, POUDRE POUR USAGE PARENT?RAL [Suspect]
     Active Substance: IFOSFAMIDE
     Indication: EWING^S SARCOMA
     Dosage: FIRST CYCLE
     Route: 042
     Dates: start: 20170721, end: 20170723
  4. LOVENOX [Suspect]
     Active Substance: ENOXAPARIN SODIUM
     Indication: THROMBOSIS PROPHYLAXIS
     Dosage: FORM STRENGTH: 4000 IU ANTI-XA/0.4ML, FORM OF ADMIN: SOLUTION FOR INJECTION IN PRE-FILLED SYRINGE
     Route: 058
     Dates: start: 20170721
  5. ETOPOSIDE TEVA [Suspect]
     Active Substance: ETOPOSIDE
     Indication: EWING^S SARCOMA
     Dosage: FORM STRENGTH: 200MG/10ML, FIRST CYCLE
     Route: 042
     Dates: start: 20170721, end: 20170723
  6. SOLU-MEDROL [Suspect]
     Active Substance: METHYLPREDNISOLONE SODIUM SUCCINATE
     Indication: PRODUCT USED FOR UNKNOWN INDICATION
     Dosage: FORM OF ADMIN: LYOPHILISATE AND SOLUTION FOR PARENTERAL ROUTE AND FORM STRENGTH: 120MG/2ML, FIRST CY
     Route: 042
     Dates: start: 20170721, end: 20170723
  7. ACTISKENAN [Suspect]
     Active Substance: MORPHINE SULFATE
     Indication: PAIN
     Route: 048
     Dates: start: 20170721
  8. PRIMPERAN [Concomitant]
     Active Substance: METOCLOPRAMIDE HYDROCHLORIDE
     Indication: VOMITING
     Dosage: FORM OF ADMIN: SCORED TABLET
     Route: 048
     Dates: start: 20170724
  9. UROMITEXAN 5 G/50 ML, SOLUTION INJECTABLE POUR PERFUSION EN FLACON [Suspect]
     Active Substance: MESNA
     Indication: EWING^S SARCOMA
     Dosage: FIRST CYCLE
     Route: 042
     Dates: start: 20170721, end: 20170723
  10. VINCRISTINE TEVA [Suspect]
     Active Substance: VINCRISTINE
     Indication: EWING^S SARCOMA
     Dosage: FORM STRENGTH: 0.1% (1MG/1ML), FIRST CYCLE
     Route: 042
     Dates: start: 20170721, end: 20170721
  11. PALONOSETRON ACCORD [Suspect]
     Active Substance: PALONOSETRON HYDROCHLORIDE
     Indication: VOMITING
     Dosage: FIRST CYCLE
     Route: 042
     Dates: start: 20170721, end: 20170723
  12. PLITICAN [Suspect]
     Active Substance: ALIZAPRIDE HYDROCHLORIDE
     Indication: VOMITING
     Dosage: FIRST CYCLE
     Route: 042
     Dates: start: 20170721, end: 20170723

REACTIONS (3)
  - Pyrexia [Unknown]
  - Toxic encephalopathy [Recovering/Resolving]
  - Hyponatraemia [Unknown]

NARRATIVE: CASE EVENT DATE: 20170724
